FAERS Safety Report 5798025-7 (Version None)
Quarter: 2008Q3

REPORT INFORMATION
  Report Type: 
  Country: None (occurrence: None)
  Receive Date: 20080701
  Receipt Date: 20080701
  Transmission Date: 20090109
  Serious: Yes (Life-Threatening, Other)
  Sender: FDA-Public Use
  Company Number: None

PATIENT
  Sex: Female
  Weight: 83.9154 kg

DRUGS (1)
  1. LAMICTAL [Suspect]
     Indication: BIPOLAR I DISORDER
     Dosage: 150 MG ONE QAM PO
     Route: 048
     Dates: start: 20080128, end: 20080610

REACTIONS (4)
  - ARTHRALGIA [None]
  - BLISTER [None]
  - ECCHYMOSIS [None]
  - MALAISE [None]
